FAERS Safety Report 4915368-7 (Version None)
Quarter: 2006Q1

REPORT INFORMATION
  Report Type: 
  Country: None (occurrence: None)
  Receive Date: 20060113
  Receipt Date: 20051005
  Transmission Date: 20060701
  Serious: No
  Sender: FDA-Public Use
  Company Number: 2005SP003389

PATIENT
  Age: 36 Year
  Sex: Female
  Weight: 61.2356 kg

DRUGS (10)
  1. LUNESTA [Suspect]
     Indication: INSOMNIA
     Dosage: 3 MG;HS;ORAL
     Route: 048
     Dates: start: 20050812, end: 20051007
  2. ASACOL [Concomitant]
  3. ZYRTEC [Concomitant]
  4. ACIPHEX [Concomitant]
  5. IMURAN [Concomitant]
  6. VICODIN [Concomitant]
  7. MULTIVITAMIN [Concomitant]
  8. FISH OIL [Concomitant]
  9. CALCIUM WITH VITAMIN D [Concomitant]
  10. ZINC [Concomitant]

REACTIONS (1)
  - DYSGEUSIA [None]
